FAERS Safety Report 25734190 (Version 1)
Quarter: 2025Q3

REPORT INFORMATION
  Report Type: Spontaneous
  Country: US (occurrence: US)
  Receive Date: 20250828
  Receipt Date: 20250828
  Transmission Date: 20251020
  Serious: Yes (Hospitalization, Other)
  Sender: Norvium Bioscience
  Company Number: US-Norvium Bioscience LLC-080530

PATIENT
  Age: 79 Year
  Sex: Male

DRUGS (3)
  1. ESCITALOPRAM OXALATE [Interacting]
     Active Substance: ESCITALOPRAM OXALATE
     Indication: Product used for unknown indication
  2. BUPROPION\DEXTROMETHORPHAN [Interacting]
     Active Substance: BUPROPION\DEXTROMETHORPHAN
     Indication: Product used for unknown indication
     Dosage: 45 MG/105 MG
  3. ESCITALOPRAM OXALATE [Interacting]
     Active Substance: ESCITALOPRAM OXALATE
     Indication: Product used for unknown indication

REACTIONS (2)
  - Serotonin syndrome [Recovering/Resolving]
  - Drug interaction [Unknown]
